FAERS Safety Report 14013258 (Version 1)
Quarter: 2017Q3

REPORT INFORMATION
  Report Type: Spontaneous
  Country: TW (occurrence: TW)
  Receive Date: 20170926
  Receipt Date: 20170926
  Transmission Date: 20171128
  Serious: Yes (Death)
  Sender: FDA-Public Use
  Company Number: TW-PFIZER INC-2017327440

PATIENT
  Age: 64 Year
  Sex: Male

DRUGS (1)
  1. SUTENT [Suspect]
     Active Substance: SUNITINIB MALATE
     Indication: GASTROINTESTINAL STROMAL TUMOUR
     Dosage: 37.5 MG, 1X/DAY (3 DF, QD)
     Route: 048
     Dates: start: 20170630

REACTIONS (4)
  - Glossodynia [Unknown]
  - Death [Fatal]
  - Fatigue [Unknown]
  - Yellow skin [Unknown]

NARRATIVE: CASE EVENT DATE: 201707
